FAERS Safety Report 23965093 (Version 2)
Quarter: 2024Q3

REPORT INFORMATION
  Report Type: Report from Study
  Country: ZA (occurrence: ZA)
  Receive Date: 20240612
  Receipt Date: 20240709
  Transmission Date: 20241017
  Serious: Yes (Hospitalization, Other)
  Sender: ROCHE
  Company Number: ZA-ROCHE-3366397

PATIENT
  Sex: Female

DRUGS (1)
  1. OCREVUS [Suspect]
     Active Substance: OCRELIZUMAB
     Indication: Relapsing multiple sclerosis
     Dosage: THERE AFTER EVERY 6 MONTHS
     Route: 041
     Dates: start: 20211125

REACTIONS (7)
  - Expanded disability status scale score increased [Unknown]
  - Gliosis [Unknown]
  - Meningioma [Unknown]
  - Paranasal cyst [Unknown]
  - Sinusitis [Unknown]
  - Multiple sclerosis [Unknown]
  - Pneumonia [Unknown]
